FAERS Safety Report 5169575-1 (Version None)
Quarter: 2006Q4

REPORT INFORMATION
  Report Type: 
  Country: None (occurrence: None)
  Receive Date: 20061204
  Receipt Date: 20061127
  Transmission Date: 20070319
  Serious: Yes (Hospitalization)
  Sender: FDA-Public Use
  Company Number: 237755K06USA

PATIENT
  Age: 49 Year
  Sex: Female

DRUGS (2)
  1. REBIF [Suspect]
     Indication: MULTIPLE SCLEROSIS
     Dosage: 44 MCG, 3 IN 1 WEEKS, SUBCUTANEOUS
     Route: 058
     Dates: start: 20050823
  2. INSULIN (INSULIN) [Concomitant]

REACTIONS (4)
  - CHEST PAIN [None]
  - DIABETIC KETOACIDOSIS [None]
  - HYPOTENSION [None]
  - PAIN IN EXTREMITY [None]
